FAERS Safety Report 12742466 (Version 1)
Quarter: 2016Q3

REPORT INFORMATION
  Report Type: Spontaneous
  Country: JP (occurrence: JP)
  Receive Date: 20160914
  Receipt Date: 20160914
  Transmission Date: 20161109
  Serious: Yes (Hospitalization, Other)
  Sender: FDA-Public Use
  Company Number: JP-009507513-1609JPN005088

PATIENT
  Age: 4 Year
  Sex: Male
  Weight: 16.6 kg

DRUGS (3)
  1. ATROPINE. [Concomitant]
     Active Substance: ATROPINE
     Dosage: DAILY DOSE UNKNOWN
     Route: 065
  2. VAGOSTIGMIN (NEOSTIGMINE METHYLSULFATE) [Concomitant]
     Active Substance: NEOSTIGMINE METHYLSULFATE
     Dosage: DAILY DOSE UNKNOWN
     Route: 065
  3. BRIDION [Suspect]
     Active Substance: SUGAMMADEX
     Indication: NEUROMUSCULAR BLOCKADE REVERSAL
     Dosage: 2 MG/KG, BID
     Route: 051
     Dates: start: 20160831, end: 20160831

REACTIONS (2)
  - Erythema [Recovered/Resolved]
  - Oxygen saturation decreased [Recovered/Resolved]

NARRATIVE: CASE EVENT DATE: 20160831
